FAERS Safety Report 5775100-4 (Version None)
Quarter: 2008Q2

REPORT INFORMATION
  Report Type: 
  Country: None (occurrence: None)
  Receive Date: 20080617
  Receipt Date: 20080606
  Transmission Date: 20081010
  Serious: Yes (Other)
  Sender: FDA-Public Use
  Company Number: TW-JNJFOC-20080602365

PATIENT

DRUGS (1)
  1. RISPERDAL [Suspect]
     Indication: DRUG USE FOR UNKNOWN INDICATION
     Route: 030

REACTIONS (1)
  - RHABDOMYOLYSIS [None]
